FAERS Safety Report 7993936-6 (Version None)
Quarter: 2011Q4

REPORT INFORMATION
  Report Type: 
  Country: None (occurrence: None)
  Receive Date: 20111215
  Receipt Date: 20111205
  Transmission Date: 20120403
  Serious: Yes (Hospitalization)
  Sender: FDA-Public Use
  Company Number: 1127623

PATIENT
  Age: 68 Year
  Sex: Female

DRUGS (7)
  1. CARBOPLATIN [Suspect]
     Indication: OVARIAN CANCER
     Dosage: 600 MG, CYCLIC, , INTRAVENOUS
     Route: 042
     Dates: start: 20111110, end: 20111201
  2. PACLITAXEL [Concomitant]
  3. (RANIDIL) [Concomitant]
  4. (NAVOBAN) [Concomitant]
  5. BISOPROLOL FUMARATE [Concomitant]
  6. DEXAMETHASONE SODIUM PHOSPHATE [Concomitant]
  7. RAMIPRIL [Concomitant]

REACTIONS (2)
  - DYSPNOEA [None]
  - ABDOMINAL PAIN UPPER [None]
